FAERS Safety Report 20437930 (Version 1)
Quarter: 2022Q1

REPORT INFORMATION
  Report Type: Spontaneous
  Country: US (occurrence: None)
  Receive Date: 20220204
  Receipt Date: 20220204
  Transmission Date: 20220423
  Serious: No
  Sender: FDA-Public Use
  Company Number: None

PATIENT
  Age: 17 Year
  Sex: Male

DRUGS (1)
  1. STELARA [Suspect]
     Active Substance: USTEKINUMAB
     Indication: Crohn^s disease
     Dosage: 90MG/ML  EVERY 8 WEEKS UNDER THE SKIN?
     Route: 058

REACTIONS (2)
  - Condition aggravated [None]
  - Weight decreased [None]

NARRATIVE: CASE EVENT DATE: 20220201
